FAERS Safety Report 8743576 (Version 2)
Quarter: 2012Q4

REPORT INFORMATION
  Report Type: Report from Study
  Country: US (occurrence: US)
  Receive Date: 20120824
  Receipt Date: 20120910
  Transmission Date: 20130627
  Serious: Yes (Congenital Anomaly)
  Sender: FDA-Public Use
  Company Number: US-TEVA-355443USA

PATIENT
  Age: 1 Year
  Sex: Male
  Weight: 4.45 kg

DRUGS (11)
  1. PROVIGIL [Suspect]
     Route: 064
  2. SERTRALINE [Concomitant]
     Indication: DEPRESSION
     Dosage: 50 Milligram Daily;
  3. OMEPRAZOLE [Concomitant]
     Indication: GASTROOESOPHAGEAL REFLUX DISEASE
     Dosage: 20 Milligram Daily;
  4. INSULIN GLARGINE [Concomitant]
     Indication: DIABETES MELLITUS
  5. INSULIN ASPART [Concomitant]
     Indication: DIABETES MELLITUS
  6. PRENATAL VITAMINS [Concomitant]
     Indication: PREGNANCY
  7. AMMONIUM LACTATE [Concomitant]
  8. CALAMINE [Concomitant]
  9. LACTOBACILLUS ACIDOPHILUS [Concomitant]
     Indication: PROBIOTIC THERAPY
  10. ASCORBIC ACID [Concomitant]
     Indication: SUPPLEMENTATION THERAPY
  11. ONDANSETRON [Concomitant]
     Indication: DEPRESSION
     Dosage: Q 4 hours PRN

REACTIONS (1)
  - Macrosomia [Recovered/Resolved]
